FAERS Safety Report 4868421-0 (Version None)
Quarter: 2005Q4

REPORT INFORMATION
  Report Type: 
  Country: None (occurrence: None)
  Receive Date: 20051229
  Receipt Date: 20051212
  Transmission Date: 20060501
  Serious: Yes (Other)
  Sender: FDA-Public Use
  Company Number: US-BRISTOL-MYERS SQUIBB COMPANY-13212758

PATIENT
  Age: 53 Year
  Sex: Male

DRUGS (10)
  1. CETUXIMAB [Suspect]
     Indication: COLORECTAL CANCER METASTATIC
     Dosage: DOSE 176 MG-RECEIVED APPROXIMATELY 50 ML. RECHALLENGED ON 21-DEC-05 WITH 200 MG/M2 OVER 120 MIN.
     Route: 042
     Dates: start: 20051212, end: 20051212
  2. LISINOPRIL [Concomitant]
     Route: 048
     Dates: start: 20051024
  3. ATENOLOL [Concomitant]
     Route: 048
     Dates: start: 20051013
  4. BENADRYL [Concomitant]
     Indication: PREMEDICATION
     Dates: start: 20051212, end: 20051212
  5. ANZEMET [Concomitant]
     Route: 048
     Dates: start: 20051215, end: 20051215
  6. LORAZEPAM [Concomitant]
     Route: 048
     Dates: start: 20051215, end: 20051215
  7. FLUOXETINE HCL [Concomitant]
     Route: 048
     Dates: start: 20051214
  8. IBUPROFEN [Concomitant]
     Route: 048
     Dates: start: 20051123
  9. VIAGRA [Concomitant]
     Route: 048
     Dates: start: 20041024
  10. VENTOLIN [Concomitant]
     Route: 050
     Dates: start: 20051221, end: 20051221

REACTIONS (2)
  - ABDOMINAL PAIN [None]
  - BONE PAIN [None]
